FAERS Safety Report 17289326 (Version 1)
Quarter: 2020Q1

REPORT INFORMATION
  Report Type: Spontaneous
  Country: CA (occurrence: CA)
  Receive Date: 20200120
  Receipt Date: 20200120
  Transmission Date: 20200409
  Serious: Yes (Other)
  Sender: FDA-Public Use
  Company Number: CA-SILVERGATE PHARMACEUTICALS, INC.-2020SIL00001

PATIENT
  Age: 61 Year
  Sex: Male

DRUGS (2)
  1. METHOTREXATE. [Suspect]
     Active Substance: METHOTREXATE
     Indication: DIFFUSE LARGE B-CELL LYMPHOMA
     Dosage: 6500 MG, ONCE (OVER 4 HOURS)
     Route: 042
  2. SODIUM BICARBONATE. [Concomitant]
     Active Substance: SODIUM BICARBONATE
     Dosage: 0.15 MEQ/ML (160 ML/H)
     Route: 042

REACTIONS (2)
  - Toxicity to various agents [Recovering/Resolving]
  - Status epilepticus [Recovered/Resolved]
